FAERS Safety Report 9501576 (Version 2)
Quarter: 2013Q3

REPORT INFORMATION
  Report Type: Spontaneous
  Country: CA (occurrence: CA)
  Receive Date: 20130905
  Receipt Date: 20130905
  Transmission Date: 20140515
  Serious: Yes (Hospitalization, Other)
  Sender: FDA-Public Use
  Company Number: CA-BAXTER-2013BAX033542

PATIENT
  Age: 74 Year
  Sex: Female

DRUGS (4)
  1. DIANEAL PD4 SOLUTION WITH 1.5% DEXTROSE AND 2.5 MEQ/L CALCIUM [Suspect]
     Indication: NEPHROPATHY TOXIC
     Route: 033
     Dates: start: 201308
  2. DIANEAL PD4 SOLUTION WITH 1.5% DEXTROSE AND 2.5 MEQ/L CALCIUM [Suspect]
     Route: 033
  3. DIANEAL PD4 SOLUTION WITH 2.5% DEXTROSE AND 2.5 MEQ/L CALCIUM [Suspect]
     Indication: NEPHROPATHY TOXIC
     Route: 033
  4. EXTRANEAL [Suspect]
     Indication: NEPHROPATHY TOXIC
     Route: 033

REACTIONS (3)
  - Blood iron increased [Unknown]
  - Blister [Recovering/Resolving]
  - Hypotension [Not Recovered/Not Resolved]
